FAERS Safety Report 4480452-1 (Version None)
Quarter: 2004Q4

REPORT INFORMATION
  Report Type: 
  Country: None (occurrence: None)
  Receive Date: 20041018
  Receipt Date: 20041005
  Transmission Date: 20050328
  Serious: Yes (Hospitalization)
  Sender: FDA-Public Use
  Company Number: B0347254A

PATIENT
  Age: 46 Year
  Sex: Female
  Weight: 80.5135 kg

DRUGS (10)
  1. ZOVIRAX [Suspect]
     Dosage: 5 MG/KG/DAY/ INTRAVENOUS
     Route: 042
  2. LOPINAVIR + RITONAVIR [Concomitant]
  3. EFAVIRENZ [Concomitant]
  4. LAMIVUDINE [Concomitant]
  5. GABAPENTIN [Concomitant]
  6. PANTOPRAZOLE [Concomitant]
  7. AMLODIPINE [Concomitant]
  8. NEPHROCAPS [Concomitant]
  9. SEVELAMER HYDROCHLORIDE [Concomitant]
  10. EPOGEN [Concomitant]

REACTIONS (18)
  - AORTIC THROMBOSIS [None]
  - BLOOD BICARBONATE INCREASED [None]
  - BLOOD PH DECREASED [None]
  - CALCIPHYLAXIS [None]
  - CARDIOMEGALY [None]
  - CENTRAL VENOUS PRESSURE INCREASED [None]
  - CHEST X-RAY ABNORMAL [None]
  - DECUBITUS ULCER [None]
  - DELIRIUM [None]
  - DRUG LEVEL INCREASED [None]
  - HYPOXIA [None]
  - NEUROTOXICITY [None]
  - PCO2 INCREASED [None]
  - PERITONEAL DIALYSIS [None]
  - PO2 INCREASED [None]
  - PULMONARY ARTERIAL PRESSURE INCREASED [None]
  - PULMONARY ARTERIAL WEDGE PRESSURE INCREASED [None]
  - RESPIRATORY RATE DECREASED [None]
